FAERS Safety Report 8827364 (Version 1)
Quarter: 2012Q4

REPORT INFORMATION
  Report Type: 
  Country: US (occurrence: US)
  Receive Date: 20121005
  Receipt Date: 20121005
  Transmission Date: 20130627
  Serious: No
  Sender: FDA-Public Use
  Company Number: US-BRISTOL-MYERS SQUIBB COMPANY-16193674

PATIENT
  Age: 75 Year
  Sex: Female
  Weight: 88 kg

DRUGS (5)
  1. AVAPRO [Suspect]
     Indication: HYPERTENSION
     Dosage: Started 5 years ago
     Route: 048
     Dates: start: 20111020
  2. METOPROLOL [Concomitant]
  3. SYNTHROID [Concomitant]
  4. FLUTICASONE [Concomitant]
  5. ASPIRIN [Concomitant]

REACTIONS (1)
  - Dizziness [Unknown]
